FAERS Safety Report 4569426-X (Version None)
Quarter: 2005Q1

REPORT INFORMATION
  Report Type: 
  Country: None (occurrence: None)
  Receive Date: 20050201
  Receipt Date: 20050125
  Transmission Date: 20050727
  Serious: Yes (Hospitalization, Disabling)
  Sender: FDA-Public Use
  Company Number: 002#4#2002-00283

PATIENT
  Age: 37 Year
  Sex: Male

DRUGS (15)
  1. CHLORPHENIRAMINE MALEATE AND PHENYLPROPANOLAMINE HCL [Suspect]
     Dosage: ORAL
     Route: 048
  2. ALKA-SELTZER-PLUS-COLD-MEDICINE [Suspect]
     Dosage: ORAL
     Route: 048
  3. ALKA-SELTZER-PLUS-MAXIMUM-STRENGTH-SINUS [Suspect]
     Dosage: ORAL
     Route: 048
  4. ALKA-SELTZER-PLUS-NIGHT-TIME-COLD+SINUS [Suspect]
     Dosage: ORAL
     Route: 048
  5. HALL'S-MENTHO-LYPTUS-DROPS [Suspect]
     Dosage: ORAL
     Route: 048
  6. DEXATRIM [Suspect]
     Dosage: ORAL
     Route: 048
  7. ROBITUSSIN-CF [Suspect]
     Dosage: ORAL
     Route: 048
  8. TAVIST-D [Suspect]
     Dosage: ORAL
     Route: 048
  9. CHLOR-TRIMETON [Suspect]
     Dosage: ORAL
     Route: 048
  10. BROMOPHEN [Suspect]
     Dosage: ORAL
     Route: 048
  11. BC-COLD-POWDER [Suspect]
     Dosage: ORAL
     Route: 048
  12. CORICIDIN [Suspect]
     Dosage: ORAL
     Route: 048
  13. DRISTAN [Suspect]
     Dosage: ORAL
     Route: 048
  14. DIMETAPP [Suspect]
     Dosage: ORAL
     Route: 048
  15. TRIAMINIC SRT [Suspect]
     Dosage: ORAL
     Route: 048

REACTIONS (6)
  - ANTICOAGULATION DRUG LEVEL BELOW THERAPEUTIC [None]
  - BLOOD GLUCOSE INCREASED [None]
  - BLOOD PRESSURE INCREASED [None]
  - CEREBRAL INFARCTION [None]
  - CEREBROVASCULAR ACCIDENT [None]
  - MYOCARDIAL INFARCTION [None]
